FAERS Safety Report 15511963 (Version 2)
Quarter: 2020Q2

REPORT INFORMATION
  Report Type: Spontaneous
  Country: BR (occurrence: BR)
  Receive Date: 20181016
  Receipt Date: 20200603
  Transmission Date: 20200713
  Serious: Yes (Death)
  Sender: FDA-Public Use
  Company Number: BR-BAUSCH-BL-2018-028088

PATIENT
  Age: 49 Year
  Sex: Female

DRUGS (21)
  1. ESOMEPRAZOLE. [Concomitant]
     Active Substance: ESOMEPRAZOLE MAGNESIUM
     Indication: VOMITING
     Route: 065
     Dates: start: 2014
  2. ESOMEPRAZOLE. [Concomitant]
     Active Substance: ESOMEPRAZOLE MAGNESIUM
     Indication: VERTIGO
  3. DEXAMETHASONE. [Suspect]
     Active Substance: DEXAMETHASONE
     Route: 065
  4. PREDNISONE. [Suspect]
     Active Substance: PREDNISONE
     Route: 065
     Dates: start: 2014, end: 2014
  5. CINNARIZINE [Concomitant]
     Active Substance: CINNARIZINE
     Indication: VOMITING
     Route: 065
     Dates: start: 2014
  6. DEXAMETHASONE. [Suspect]
     Active Substance: DEXAMETHASONE
     Route: 065
     Dates: start: 2014, end: 2014
  7. VANCOMYCIN [Suspect]
     Active Substance: VANCOMYCIN
     Indication: CEREBROSPINAL FISTULA
     Route: 065
  8. BROMOPRIDE [Concomitant]
     Active Substance: BROMOPRIDE
     Indication: VERTIGO
  9. PARACETAMOL/CODEINE [Concomitant]
     Active Substance: ACETAMINOPHEN\CODEINE PHOSPHATE
     Indication: VERTIGO
  10. CEFEPIME [Suspect]
     Active Substance: CEFEPIME HYDROCHLORIDE
     Indication: EVIDENCE BASED TREATMENT
     Route: 065
     Dates: start: 2014, end: 2014
  11. DEXAMETHASONE. [Suspect]
     Active Substance: DEXAMETHASONE
     Indication: CEREBROSPINAL FISTULA
     Route: 065
     Dates: start: 2014, end: 2014
  12. DEXAMETHASONE. [Suspect]
     Active Substance: DEXAMETHASONE
     Route: 065
     Dates: start: 2014, end: 2014
  13. CEFTRIAXONE. [Suspect]
     Active Substance: CEFTRIAXONE
     Indication: CEREBROSPINAL FISTULA
     Route: 065
     Dates: start: 2014, end: 2014
  14. PREDNISONE. [Suspect]
     Active Substance: PREDNISONE
     Indication: INFLAMMATION
     Route: 065
     Dates: start: 2014, end: 2014
  15. PREDNISONE. [Suspect]
     Active Substance: PREDNISONE
     Indication: CEREBROSPINAL FISTULA
     Dosage: 30 DAYS OF WEANING
     Route: 065
     Dates: start: 2014, end: 2014
  16. CINNARIZINE [Concomitant]
     Active Substance: CINNARIZINE
     Indication: VERTIGO
  17. PREDNISONE. [Suspect]
     Active Substance: PREDNISONE
     Dosage: 30 DAYS OF WEANING
     Route: 065
     Dates: start: 2014, end: 2014
  18. PREDNISONE. [Suspect]
     Active Substance: PREDNISONE
     Dosage: 20 DAYS OF WEANING
     Route: 065
  19. PARACETAMOL/CODEINE [Concomitant]
     Active Substance: ACETAMINOPHEN\CODEINE PHOSPHATE
     Indication: VOMITING
     Route: 065
     Dates: start: 2014
  20. MEROPENEM. [Suspect]
     Active Substance: MEROPENEM
     Indication: EVIDENCE BASED TREATMENT
     Route: 065
  21. BROMOPRIDE [Concomitant]
     Active Substance: BROMOPRIDE
     Indication: VOMITING
     Route: 065
     Dates: start: 2014

REACTIONS (2)
  - Encephalitis [Fatal]
  - Trichosporon infection [Fatal]
